FAERS Safety Report 17600452 (Version 15)
Quarter: 2022Q3

REPORT INFORMATION
  Report Type: Spontaneous
  Country: DE (occurrence: DE)
  Receive Date: 20200330
  Receipt Date: 20220811
  Transmission Date: 20221026
  Serious: Yes (Life-Threatening, Hospitalization, Other)
  Sender: FDA-Public Use
  Company Number: None

PATIENT
  Age: 68 Year
  Sex: Male
  Weight: 77 kg

DRUGS (25)
  1. INSULIN GLARGINE [Interacting]
     Active Substance: INSULIN GLARGINE
     Indication: Diabetes mellitus
     Dosage: 15 INTERNATIONAL UNIT, DAILY
     Route: 065
     Dates: start: 201808
  2. INSULIN GLARGINE [Interacting]
     Active Substance: INSULIN GLARGINE
     Indication: Diabetes mellitus
     Dosage: 15 INTERNATIONAL UNIT, EACH EVENING
     Route: 065
     Dates: start: 201808
  3. JANUMET [Interacting]
     Active Substance: METFORMIN HYDROCHLORIDE\SITAGLIPTIN PHOSPHATE
     Indication: Diabetes mellitus
     Dosage: 1 DOSAGE FORM 50/1000 MG(AS REPORTED), BID
     Route: 065
     Dates: start: 201808
  4. BENFOTIAMINE [Interacting]
     Active Substance: BENFOTIAMINE
     Indication: Cardiovascular disorder
     Dosage: 300 MG, DAILY
     Route: 065
     Dates: start: 201808
  5. BENFOTIAMINE [Interacting]
     Active Substance: BENFOTIAMINE
     Indication: Cardiovascular disorder
  6. BENFOTIAMINE [Interacting]
     Active Substance: BENFOTIAMINE
     Indication: Cerebrovascular accident prophylaxis
  7. TORSEMIDE [Interacting]
     Active Substance: TORSEMIDE
     Indication: Renal disorder
     Dosage: 10 MG, DAILY (IN MORNING 1-0-0)
     Route: 065
     Dates: start: 201808
  8. ALLOPURINOL [Interacting]
     Active Substance: ALLOPURINOL
     Indication: Gout
     Dosage: 100 MG, DAILY
     Route: 065
     Dates: start: 201808
  9. AMLODIPINE BESYLATE [Interacting]
     Active Substance: AMLODIPINE BESYLATE
     Indication: Hypertension
     Dosage: 5 MG, BID (1-0-1)
     Route: 065
     Dates: start: 201808
  10. RAMIPRIL [Interacting]
     Active Substance: RAMIPRIL
     Indication: Hypertension
     Dosage: 5 MG, BID
     Route: 065
     Dates: start: 201808
  11. ELIQUIS [Interacting]
     Active Substance: APIXABAN
     Indication: Atrial fibrillation
     Dosage: 5 MG, BID
     Route: 065
     Dates: start: 201808
  12. ELIQUIS [Interacting]
     Active Substance: APIXABAN
     Indication: Cerebrovascular accident prophylaxis
  13. IVABRADINE [Interacting]
     Active Substance: IVABRADINE
     Indication: Cardiac disorder
     Dosage: 7.5 MG, DAILY
     Route: 065
     Dates: start: 201808
  14. CARVEDILOL [Interacting]
     Active Substance: CARVEDILOL
     Indication: Cardiac disorder
     Dosage: 25 MG, BID (1-0-1)
     Route: 065
     Dates: start: 201808
  15. SPIRONOLACTONE [Interacting]
     Active Substance: SPIRONOLACTONE
     Indication: Cardiac disorder
     Dosage: 50 MG, DAILY
     Route: 065
     Dates: start: 20110506
  16. SPIRONOLACTONE [Interacting]
     Active Substance: SPIRONOLACTONE
     Indication: Coronary artery disease
     Dosage: 50 MG, DAILY (IN THE MORNING 1-0-0)
     Route: 048
     Dates: start: 201808
  17. SIMVASTATIN [Interacting]
     Active Substance: SIMVASTATIN
     Indication: Blood cholesterol
     Dosage: 40 MG, DAILY (AT NIGHT)
     Route: 065
     Dates: start: 20110506
  18. SIMVASTATIN [Interacting]
     Active Substance: SIMVASTATIN
     Indication: Coronary artery disease
     Dosage: 40 MG, DAILY (AT NIGHT 0-0-1)
     Route: 048
     Dates: start: 201808
  19. SIMVASTATIN [Interacting]
     Active Substance: SIMVASTATIN
     Indication: Gout
     Dosage: 10 MG, DAILY
     Route: 065
     Dates: start: 201808
  20. SIMVASTATIN [Interacting]
     Active Substance: SIMVASTATIN
     Indication: Diabetes mellitus
     Dosage: 50 MG, DAILY
     Route: 065
     Dates: start: 201108
  21. SIMVASTATIN [Interacting]
     Active Substance: SIMVASTATIN
     Indication: Hypertension
     Dosage: 15 INTERNATIONAL UNIT, DAILY
     Route: 065
     Dates: start: 201808
  22. SIMVASTATIN [Interacting]
     Active Substance: SIMVASTATIN
     Dosage: 100 MG, DAILY (15 INTERNATIONAL UNIT, DAILY)
     Route: 065
     Dates: start: 201808
  23. AVASTIN [Interacting]
     Active Substance: BEVACIZUMAB
     Indication: Diabetic retinal oedema
     Dosage: UNK UNK, INJECT INTO THE RIGHT EYE AT 1.30 PM
     Route: 031
     Dates: start: 20200115
  24. ATORVASTATIN CALCIUM [Interacting]
     Active Substance: ATORVASTATIN CALCIUM
     Indication: Diabetic retinal oedema
     Dosage: INJECT IN THE RIGHT EYE AT 13.30
     Route: 031
     Dates: start: 20200115
  25. LEVETIRACETAM [Concomitant]
     Active Substance: LEVETIRACETAM
     Indication: Product used for unknown indication
     Dosage: 2 DOSAGE FORM, DAILY (1-0-1)
     Route: 065

REACTIONS (7)
  - Seizure [Recovered/Resolved]
  - Status epilepticus [Recovering/Resolving]
  - Oculogyric crisis [Recovered/Resolved]
  - Movement disorder [Recovered/Resolved]
  - Eye movement disorder [Recovered/Resolved]
  - Muscle spasms [Recovered/Resolved]
  - Drug interaction [Recovered/Resolved]

NARRATIVE: CASE EVENT DATE: 20200101
